FAERS Safety Report 9581041 (Version 2)
Quarter: 2013Q4

REPORT INFORMATION
  Report Type: Spontaneous
  Country: US (occurrence: US)
  Receive Date: 20131002
  Receipt Date: 20131003
  Transmission Date: 20140711
  Serious: Yes (Other)
  Sender: FDA-Public Use
  Company Number: US-PERRIGO-13US009954

PATIENT
  Sex: Female
  Weight: 58.96 kg

DRUGS (4)
  1. DOXYLAMINE SUCCINATE 25 MG 441 [Suspect]
     Indication: INSOMNIA
     Dosage: 25 MG, QHS, PRN
     Route: 048
     Dates: start: 1998, end: 20130924
  2. BISOPROLOL W/HYDROCHLOROTHIAZIDE [Concomitant]
     Indication: HYPERTENSION
     Dosage: 2.5/ 6.25MG, UNK
     Route: 048
     Dates: start: 201306
  3. SYNTHROID [Concomitant]
     Indication: HYPOTHYROIDISM
     Dosage: UNK
     Route: 048
  4. BENADRYL [Concomitant]
     Indication: INSOMNIA
     Dosage: UNKNOWN, PRN
     Route: 048

REACTIONS (3)
  - Hallucination [Not Recovered/Not Resolved]
  - Blood pressure increased [Not Recovered/Not Resolved]
  - Incorrect drug administration duration [Recovered/Resolved]
